FAERS Safety Report 19926454 (Version 1)
Quarter: 2021Q4

REPORT INFORMATION
  Report Type: Spontaneous
  Country: US (occurrence: US)
  Receive Date: 20211006
  Receipt Date: 20211006
  Transmission Date: 20220303
  Serious: Yes (Other)
  Sender: FDA-Public Use
  Company Number: US-TEVA-2021-US-1961068

PATIENT
  Age: 8 Decade
  Sex: Female

DRUGS (6)
  1. HYDROXYCHLOROQUINE [Suspect]
     Active Substance: HYDROXYCHLOROQUINE
     Indication: Cutaneous lupus erythematosus
     Route: 065
  2. LENALIDOMIDE [Suspect]
     Active Substance: LENALIDOMIDE
     Indication: Cutaneous lupus erythematosus
     Route: 065
  3. TACROLIMUS [Suspect]
     Active Substance: TACROLIMUS
     Indication: Cutaneous lupus erythematosus
     Route: 061
  4. TOFACITINIB CITRATE [Suspect]
     Active Substance: TOFACITINIB CITRATE
     Indication: Cutaneous lupus erythematosus
     Dosage: THE PREPARATION CONTAINING 2G OF TOFACITINIB PER 98G OF VEHICLE
     Route: 061
  5. PREDNISONE [Concomitant]
     Active Substance: PREDNISONE
     Indication: Cutaneous lupus erythematosus
     Route: 065
  6. EUCERIN [Concomitant]
     Active Substance: ENSULIZOLE\EUCERIN\OCTINOXATE\OCTISALATE\TITANIUM DIOXIDE\ZINC OXIDE
     Indication: Vehicle solution use
     Dosage: THE PREPARATION CONTAINING 2G OF TOFACITINIB PER 98G OF VEHICLE
     Route: 061

REACTIONS (4)
  - Retinal toxicity [Unknown]
  - Platelet count decreased [Unknown]
  - Drug ineffective [Unknown]
  - Off label use [Unknown]
